FAERS Safety Report 17472664 (Version 1)
Quarter: 2020Q1

REPORT INFORMATION
  Report Type: Spontaneous
  Country: US (occurrence: US)
  Receive Date: 20200218
  Receipt Date: 20200218
  Transmission Date: 20200409
  Serious: No
  Sender: FDA-Public Use
  Company Number: None

PATIENT
  Age: 44 Year
  Sex: Male

DRUGS (1)
  1. REMICADE [Suspect]
     Active Substance: INFLIXIMAB
     Dosage: ?          OTHER FREQUENCY:UNKNOWN;?
     Route: 042
     Dates: start: 202001, end: 202002

REACTIONS (5)
  - Antibody test positive [None]
  - Blood pressure increased [None]
  - Diarrhoea [None]
  - Rash [None]
  - Abdominal pain [None]

NARRATIVE: CASE EVENT DATE: 20200218
